FAERS Safety Report 16913153 (Version 1)
Quarter: 2019Q4

REPORT INFORMATION
  Report Type: Spontaneous
  Country: US (occurrence: US)
  Receive Date: 20191014
  Receipt Date: 20191014
  Transmission Date: 20200122
  Serious: No
  Sender: FDA-Public Use
  Company Number: US-ASTRAZENECA-2019SF33229

PATIENT
  Sex: Female

DRUGS (1)
  1. BYDUREON [Suspect]
     Active Substance: EXENATIDE
     Dosage: BYDUREON INJECTION IN MY STOMACH WEEKLY FOR ABOUT 3 MONTHS
     Route: 065

REACTIONS (1)
  - Weight decreased [Unknown]
